FAERS Safety Report 6494269-X (Version None)
Quarter: 2009Q4

REPORT INFORMATION
  Report Type: 
  Country: None (occurrence: None)
  Receive Date: 20091214
  Receipt Date: 20090130
  Transmission Date: 20100525
  Serious: Yes (Hospitalization)
  Sender: FDA-Public Use
  Company Number: US-BRISTOL-MYERS SQUIBB COMPANY-14489421

PATIENT
  Age: 2 Decade
  Sex: Male

DRUGS (1)
  1. ABILIFY [Suspect]
     Dosage: DURATION: APPROXIMATELY TWO-THREE YEARS.

REACTIONS (1)
  - FEELING JITTERY [None]
